FAERS Safety Report 10992127 (Version 2)
Quarter: 2015Q2

REPORT INFORMATION
  Report Type: Report from Study
  Country: JP (occurrence: JP)
  Receive Date: 20150406
  Receipt Date: 20150428
  Transmission Date: 20150821
  Serious: Yes (Congenital Anomaly, Other)
  Sender: FDA-Public Use
  Company Number: JP-GILEAD-2015-0146725

PATIENT
  Age: 11 Year
  Sex: Male

DRUGS (16)
  1. EXCEGRAN [Concomitant]
     Active Substance: ZONISAMIDE
     Dosage: UNK
     Dates: start: 201311
  2. RENIVACE [Concomitant]
     Active Substance: ENALAPRIL
     Indication: OXYGEN SATURATION DECREASED
     Dosage: UNK
  3. KEPPRA [Concomitant]
     Active Substance: LEVETIRACETAM
     Dosage: UNK
     Dates: start: 201311
  4. ADCIRCA [Concomitant]
     Active Substance: TADALAFIL
     Indication: OXYGEN SATURATION DECREASED
     Dosage: UNK
  5. WARFARIN [Concomitant]
     Active Substance: WARFARIN
     Indication: OXYGEN SATURATION DECREASED
     Dosage: UNK
  6. ONEALFA [Concomitant]
     Active Substance: ALFACALCIDOL
     Indication: OSTEOPOROSIS PROPHYLAXIS
     Dosage: UNK
  7. LOPEMIN                            /00384302/ [Concomitant]
     Dosage: UNK
     Dates: start: 20140310, end: 20140530
  8. AMBRISENTAN [Suspect]
     Active Substance: AMBRISENTAN
     Dosage: 1.5 MG, BID
     Route: 048
     Dates: start: 20130927, end: 20131015
  9. PREDONINE [Concomitant]
     Active Substance: PREDNISOLONE\PREDNISOLONE ACETATE\PREDNISOLONE SODIUM SUCCINATE
     Dosage: UNK
  10. GASTER [Concomitant]
     Active Substance: FAMOTIDINE
     Dosage: UNK
  11. TRANSAMIN [Concomitant]
     Active Substance: TRANEXAMIC ACID
     Indication: PROTEIN-LOSING GASTROENTEROPATHY
     Dosage: UNK
     Dates: start: 20140516
  12. AMBRISENTAN [Suspect]
     Active Substance: AMBRISENTAN
     Indication: OXYGEN SATURATION DECREASED
     Dosage: 1.75 MG, BID
     Route: 048
     Dates: start: 20131015
  13. FUROSEMIDE. [Concomitant]
     Active Substance: FUROSEMIDE
     Indication: OXYGEN SATURATION DECREASED
     Dosage: UNK
  14. SODIUM CHLORIDE. [Concomitant]
     Active Substance: SODIUM CHLORIDE
     Dosage: UNK
     Dates: start: 20131225
  15. ALDACTONE [Concomitant]
     Active Substance: SPIRONOLACTONE
     Indication: OXYGEN SATURATION DECREASED
     Dosage: UNK
  16. SULFAMETHOXAZOLE AND TRIMETHOPRIM [Concomitant]
     Active Substance: SULFAMETHOXAZOLE\TRIMETHOPRIM
     Indication: ANTIFUNGAL PROPHYLAXIS
     Dosage: UNK

REACTIONS (7)
  - Upper respiratory tract inflammation [Recovering/Resolving]
  - Off label use [Not Recovered/Not Resolved]
  - Pharyngitis [Recovering/Resolving]
  - Pharyngitis [Recovering/Resolving]
  - Upper respiratory tract inflammation [Recovering/Resolving]
  - Cerebral haemorrhage [Recovering/Resolving]
  - Anaemia [Recovering/Resolving]

NARRATIVE: CASE EVENT DATE: 20130927
